FAERS Safety Report 7368320-9 (Version None)
Quarter: 2011Q1

REPORT INFORMATION
  Report Type: 
  Country: None (occurrence: None)
  Receive Date: 20110323
  Receipt Date: 20110311
  Transmission Date: 20110831
  Serious: Yes (Death, Other)
  Sender: FDA-Public Use
  Company Number: US-PFIZER INC-2008056891

PATIENT
  Sex: Male

DRUGS (15)
  1. GABAPENTIN [Suspect]
     Indication: COMPLEX REGIONAL PAIN SYNDROME
     Dosage: UNK
     Dates: start: 20050330, end: 20070524
  2. LIDODERM [Concomitant]
     Dosage: 5 %, 2X/DAY
     Dates: start: 20040630, end: 20070524
  3. OMEPRAZOLE [Concomitant]
     Dosage: 20 MG, 1X/DAY
     Dates: start: 20030101, end: 20070524
  4. ZOLPIDEM [Concomitant]
     Dosage: 10 MG, EVERY OTHER DAY
     Dates: start: 20070524
  5. NEURONTIN [Suspect]
     Dosage: UNK
     Dates: start: 20020118, end: 20020413
  6. WELLBUTRIN SR [Concomitant]
     Dosage: 150 MG, 2X/DAY
     Dates: start: 19990724, end: 20070524
  7. LAMICTAL [Concomitant]
     Dosage: 25 MG, 2X/DAY
     Dates: start: 20050302
  8. LIDOCAINE HYDROCHLORIDE/PRILOCAINE HYDROCHLORIDE [Concomitant]
     Dosage: UNK
     Dates: start: 20051229, end: 20070527
  9. NEURONTIN [Suspect]
     Indication: COMPLEX REGIONAL PAIN SYNDROME
     Dosage: UNK
     Route: 048
     Dates: start: 19990724, end: 20011220
  10. NEURONTIN [Suspect]
     Dosage: UNK
     Dates: start: 20020510, end: 20020801
  11. NEURONTIN [Suspect]
     Dosage: 400 MG, 2X/DAY
     Dates: start: 20020830, end: 20040701
  12. NEURONTIN [Suspect]
     Dosage: UNK
     Dates: start: 20040107, end: 20050228
  13. LIDODERM [Concomitant]
     Dosage: 5 %, 1X/DAY
     Dates: start: 20020502, end: 20040729
  14. LAMICTAL [Concomitant]
     Dosage: 100 MG, 1X/DAY
     Dates: start: 20050302, end: 20070527
  15. OXYCODONE AND ACETAMINOPHEN [Concomitant]
     Dosage: 325 MG, 2X/DAY
     Dates: start: 20070111, end: 20070516

REACTIONS (4)
  - COMPLETED SUICIDE [None]
  - DRUG INEFFECTIVE FOR UNAPPROVED INDICATION [None]
  - ANXIETY [None]
  - SUICIDAL IDEATION [None]
